FAERS Safety Report 9406245 (Version 1)
Quarter: 2013Q3

REPORT INFORMATION
  Report Type: Spontaneous
  Country: US (occurrence: US)
  Receive Date: 20130717
  Receipt Date: 20130717
  Transmission Date: 20140515
  Serious: No
  Sender: FDA-Public Use
  Company Number: US-BAUSCH-BL-2013-001401

PATIENT
  Age: 71 Year
  Sex: Female
  Weight: 57.66 kg

DRUGS (8)
  1. BESIVANCE (BESIFLOXACIN OPHTHALMIC SUSPENSION) 0.6% [Suspect]
     Indication: CORNEAL INFECTION
     Dosage: 1 DROP IN LEFT EYE; TWICE DAILY; OPHTHALMIC
     Route: 047
     Dates: start: 20130215
  2. LOTEPREDNOL ETABONATE [Concomitant]
  3. PANTOPRAZOLE SODIUM SESQUIHYDRATE [Concomitant]
     Indication: GASTROOESOPHAGEAL REFLUX DISEASE
  4. ESTRADIOL [Concomitant]
     Indication: OSTEOPOROSIS
  5. VITAMINS NOS/MINERALS NOS [Concomitant]
  6. ROSUVASTATIN CALCIUM [Concomitant]
     Indication: BLOOD CHOLESTEROL INCREASED
  7. COLECALCIFEROL/CALCIUM CARBONATE [Concomitant]
     Indication: OSTEOPOROSIS
  8. ALPRAZOLAM [Concomitant]
     Indication: ANXIETY

REACTIONS (3)
  - Eye irritation [Not Recovered/Not Resolved]
  - Eye pain [Not Recovered/Not Resolved]
  - Eye pruritus [Not Recovered/Not Resolved]
